FAERS Safety Report 15309798 (Version 1)
Quarter: 2018Q3

REPORT INFORMATION
  Report Type: Report from Study
  Country: None (occurrence: CA)
  Receive Date: 20180823
  Receipt Date: 20180823
  Transmission Date: 20181010
  Serious: Yes (Disabling)
  Sender: FDA-Public Use
  Company Number: CA-ABBVIE-18K-028-2360529-00

PATIENT
  Sex: Female
  Weight: 97 kg

DRUGS (5)
  1. DEPO?PROVERA [Concomitant]
     Active Substance: MEDROXYPROGESTERONE ACETATE
     Indication: PRODUCT USED FOR UNKNOWN INDICATION
  2. ATACAND [Concomitant]
     Active Substance: CANDESARTAN CILEXETIL
     Indication: PRODUCT USED FOR UNKNOWN INDICATION
  3. PAXIL [Concomitant]
     Active Substance: PAROXETINE HYDROCHLORIDE
     Indication: PRODUCT USED FOR UNKNOWN INDICATION
  4. HUMIRA [Suspect]
     Active Substance: ADALIMUMAB
     Indication: ANKYLOSING SPONDYLITIS
     Route: 058
     Dates: start: 20170210
  5. EFFEXOR [Concomitant]
     Active Substance: VENLAFAXINE HYDROCHLORIDE
     Indication: PRODUCT USED FOR UNKNOWN INDICATION

REACTIONS (13)
  - Haematochezia [Not Recovered/Not Resolved]
  - Plantar fasciitis [Recovering/Resolving]
  - Tendonitis [Recovering/Resolving]
  - Acrochordon [Not Recovered/Not Resolved]
  - Muscle tightness [Not Recovered/Not Resolved]
  - Exostosis [Recovering/Resolving]
  - Colitis ulcerative [Not Recovered/Not Resolved]
  - Migraine [Recovering/Resolving]
  - Pain in extremity [Recovering/Resolving]
  - Musculoskeletal disorder [Recovering/Resolving]
  - Mobility decreased [Not Recovered/Not Resolved]
  - C-reactive protein increased [Not Recovered/Not Resolved]
  - Dysstasia [Not Recovered/Not Resolved]

NARRATIVE: CASE EVENT DATE: 2017
